FAERS Safety Report 6810113-2 (Version None)
Quarter: 2010Q2

REPORT INFORMATION
  Report Type: 
  Country: None (occurrence: None)
  Receive Date: 20100630
  Receipt Date: 20100620
  Transmission Date: 20101027
  Serious: Yes (Hospitalization)
  Sender: FDA-Public Use
  Company Number: US-JNJFOC-20100606648

PATIENT
  Sex: Female
  Weight: 57.1 kg

DRUGS (6)
  1. REMICADE [Suspect]
     Indication: INFLAMMATORY BOWEL DISEASE
     Route: 042
     Dates: start: 20041212, end: 20050104
  2. HUMIRA [Concomitant]
  3. AMOXICILLIN [Concomitant]
  4. VENTOLIN [Concomitant]
  5. PREDNISONE [Concomitant]
  6. ANTIBIOTIC [Concomitant]
     Indication: INFLAMMATORY BOWEL DISEASE

REACTIONS (1)
  - SMALL INTESTINAL OBSTRUCTION [None]
